FAERS Safety Report 8882186 (Version 1)
Quarter: 2012Q4

REPORT INFORMATION
  Report Type: 
  Country: US (occurrence: US)
  Receive Date: 20121105
  Receipt Date: 20121105
  Transmission Date: 20130627
  Serious: Yes (Other)
  Sender: FDA-Public Use
  Company Number: US-JNJFOC-20121015505

PATIENT
  Sex: Female

DRUGS (2)
  1. RISPERDAL [Suspect]
     Indication: HALLUCINATION
     Route: 048
     Dates: start: 2012
  2. LOXAPINE [Concomitant]
     Route: 065

REACTIONS (2)
  - Self injurious behaviour [Not Recovered/Not Resolved]
  - Hallucination [Not Recovered/Not Resolved]
